FAERS Safety Report 8778990 (Version 2)
Quarter: 2012Q4

REPORT INFORMATION
  Report Type: 
  Country: CA (occurrence: CA)
  Receive Date: 20120912
  Receipt Date: 20121009
  Transmission Date: 20130627
  Serious: Yes (Hospitalization, Other)
  Sender: FDA-Public Use
  Company Number: CA-TEVA-358140USA

PATIENT
  Sex: Female

DRUGS (3)
  1. COPAXONE [Suspect]
     Indication: MULTIPLE SCLEROSIS
     Dates: start: 20120825
  2. GRAVOL [Concomitant]
  3. PANTOPRAZOLE [Concomitant]

REACTIONS (7)
  - Anger [Not Recovered/Not Resolved]
  - Haematemesis [Unknown]
  - Dysuria [Unknown]
  - Psychiatric symptom [Unknown]
  - Constipation [Unknown]
  - Swelling [Unknown]
  - Muscle rigidity [Unknown]
